FAERS Safety Report 18806552 (Version 1)
Quarter: 2021Q1

REPORT INFORMATION
  Report Type: Spontaneous
  Country: US (occurrence: US)
  Receive Date: 20210128
  Receipt Date: 20210128
  Transmission Date: 20210419
  Serious: Yes (Hospitalization)
  Sender: FDA-Public Use
  Company Number: None

PATIENT
  Age: 75 Year
  Sex: Male
  Weight: 83.7 kg

DRUGS (5)
  1. ASPRIN [Concomitant]
     Active Substance: ASPIRIN
     Dates: start: 20180302
  2. BAMLANIVIMAB. [Suspect]
     Active Substance: BAMLANIVIMAB
     Indication: COVID-19
     Dosage: ?          OTHER FREQUENCY:ONE TIME TREATMENT;?
     Route: 042
  3. FAMOTIDINE. [Concomitant]
     Active Substance: FAMOTIDINE
     Dates: start: 20210121
  4. BUDESON?GLYCOPYRROL?FORMOTEROL [Concomitant]
     Dates: start: 20201216
  5. DOCUSATE [Concomitant]
     Active Substance: DOCUSATE
     Dates: start: 20210121

REACTIONS (2)
  - Dyspnoea [None]
  - Hypoxia [None]

NARRATIVE: CASE EVENT DATE: 20210122
